FAERS Safety Report 5774950-8 (Version None)
Quarter: 2008Q2

REPORT INFORMATION
  Report Type: 
  Country: None (occurrence: None)
  Receive Date: 20080617
  Receipt Date: 20080530
  Transmission Date: 20081010
  Serious: Yes (Death)
  Sender: FDA-Public Use
  Company Number: US-AMGEN-KDL262605

PATIENT
  Sex: Male
  Weight: 66.3 kg

DRUGS (11)
  1. PROCRIT [Suspect]
     Indication: RENAL FAILURE CHRONIC
     Route: 058
     Dates: start: 20060103
  2. IRON [Concomitant]
  3. ASCORBIC ACID [Concomitant]
  4. VITAMIN B-12 [Concomitant]
     Route: 058
  5. FOLIC ACID [Concomitant]
  6. SYNTHROID [Concomitant]
  7. COUMADIN [Concomitant]
  8. ALTACE [Concomitant]
  9. HYDRODIURIL [Concomitant]
  10. POTASSIUM CHLORIDE [Concomitant]
  11. CALCIUM [Concomitant]

REACTIONS (8)
  - ABASIA [None]
  - ANGINA PECTORIS [None]
  - ASTHENIA [None]
  - DEATH [None]
  - FALL [None]
  - FATIGUE [None]
  - HAEMOGLOBIN DECREASED [None]
  - HYPERSOMNIA [None]
